FAERS Safety Report 8515547-6 (Version None)
Quarter: 2012Q3

REPORT INFORMATION
  Report Type: 
  Country: None (occurrence: None)
  Receive Date: 20120717
  Receipt Date: 20120706
  Transmission Date: 20120928
  Serious: Yes (Hospitalization)
  Sender: FDA-Public Use
  Company Number: JP-JNJFOC-20120409307

PATIENT
  Sex: Female
  Weight: 46 kg

DRUGS (20)
  1. DOMPERIDONE [Concomitant]
     Indication: PROPHYLAXIS
     Route: 048
     Dates: start: 20111226, end: 20120112
  2. URSO 250 [Concomitant]
     Indication: PROPHYLAXIS
     Route: 048
  3. TRAMADOL HCL [Suspect]
     Route: 048
     Dates: start: 20120124, end: 20120203
  4. TRAMADOL HCL [Suspect]
     Route: 048
     Dates: start: 20111226, end: 20120112
  5. DOMPERIDONE [Concomitant]
     Route: 048
     Dates: start: 20120124, end: 20120203
  6. CYTOTEC [Concomitant]
     Indication: PROPHYLAXIS
     Route: 048
  7. LANSOPRAZOLE [Concomitant]
     Indication: PROPHYLAXIS
     Route: 048
  8. SIMPONI [Suspect]
     Indication: RHEUMATOID ARTHRITIS
     Route: 058
     Dates: start: 20120201, end: 20120221
  9. CLARITHROMYCIN [Concomitant]
     Route: 048
  10. FORTEO [Concomitant]
     Route: 058
  11. BREDININ [Concomitant]
     Indication: RHEUMATOID ARTHRITIS
     Route: 048
  12. BREDININ [Concomitant]
     Route: 048
  13. ACTEMRA [Suspect]
     Indication: RHEUMATOID ARTHRITIS
     Route: 041
     Dates: end: 20111221
  14. DOMPERIDONE [Concomitant]
     Route: 048
     Dates: start: 20120113, end: 20120123
  15. LIPITOR [Concomitant]
     Route: 048
  16. METHOTREXATE [Suspect]
     Indication: RHEUMATOID ARTHRITIS
     Route: 048
     Dates: start: 20120206
  17. TRAMADOL HCL [Suspect]
     Indication: RHEUMATOID ARTHRITIS
     Route: 048
     Dates: start: 20120113, end: 20120123
  18. ITRACONAZOLE [Suspect]
     Indication: ONYCHOMYCOSIS
     Route: 048
  19. FOLIAMIN [Concomitant]
     Indication: PROPHYLAXIS
     Route: 048
  20. DIOVAN [Concomitant]
     Route: 048

REACTIONS (1)
  - GASTRIC CANCER [None]
